FAERS Safety Report 11743474 (Version 2)
Quarter: 2015Q4

REPORT INFORMATION
  Report Type: Spontaneous
  Country: DE (occurrence: DE)
  Receive Date: 20151116
  Receipt Date: 20151119
  Transmission Date: 20160304
  Serious: Yes (Other)
  Sender: FDA-Public Use
  Company Number: DE-JNJFOC-20151109864

PATIENT
  Age: 25 Year
  Sex: Male

DRUGS (7)
  1. VALPROATE [Concomitant]
     Active Substance: VALPROATE SODIUM
     Dosage: 1000-1200 MG
     Route: 048
     Dates: start: 20150225
  2. PROPANOLOL HYDROCHLORIDE [Concomitant]
     Active Substance: PROPRANOLOL HYDROCHLORIDE
     Route: 048
  3. METHYLPHENIDATE. [Suspect]
     Active Substance: METHYLPHENIDATE
     Indication: AFFECT LABILITY
     Route: 048
     Dates: start: 20150225, end: 20150226
  4. PROTHIPENDYL HYDROCHLORIDE [Concomitant]
     Active Substance: PROTHIPENDYL HYDROCHLORIDE
     Route: 048
     Dates: start: 20150224, end: 20150226
  5. PROTHIPENDYL HYDROCHLORIDE [Concomitant]
     Active Substance: PROTHIPENDYL HYDROCHLORIDE
     Route: 048
     Dates: start: 20150219, end: 20150223
  6. VALPROATE [Concomitant]
     Active Substance: VALPROATE SODIUM
     Route: 048
     Dates: start: 20150223, end: 20150224
  7. VALPROATE [Concomitant]
     Active Substance: VALPROATE SODIUM
     Route: 048
     Dates: start: 20150219, end: 20150222

REACTIONS (1)
  - Suicidal ideation [Recovered/Resolved]

NARRATIVE: CASE EVENT DATE: 20150226
